FAERS Safety Report 9207447 (Version 1)
Quarter: 2013Q2

REPORT INFORMATION
  Report Type: Spontaneous
  Country: US (occurrence: US)
  Receive Date: 20130403
  Receipt Date: 20130403
  Transmission Date: 20140414
  Serious: Yes (Other)
  Sender: FDA-Public Use
  Company Number: US-ELI_LILLY_AND_COMPANY-US201111008164

PATIENT
  Sex: Female

DRUGS (6)
  1. FORTEO [Suspect]
     Indication: OSTEOPOROSIS
     Dosage: 20 UG, QD
     Dates: start: 20111117, end: 201212
  2. METOPROLOL [Concomitant]
     Dosage: UNK
  3. PROCARDIA                          /00340701/ [Concomitant]
     Dosage: UNK
  4. MULTIVITAMIN [Concomitant]
     Dosage: UNK
  5. CALCIUM + VITAMIN D [Concomitant]
     Dosage: 600MG CALCIUM WITH VIT D, BID
  6. ARTHROTEC [Concomitant]
     Dosage: UNK

REACTIONS (5)
  - Nerve root compression [Unknown]
  - Diarrhoea [Recovered/Resolved]
  - Fatigue [Recovered/Resolved]
  - Asthenia [Recovered/Resolved]
  - Pneumonia [Unknown]
